FAERS Safety Report 8492565-8 (Version None)
Quarter: 2012Q3

REPORT INFORMATION
  Report Type: 
  Country: None (occurrence: None)
  Receive Date: 20120706
  Receipt Date: 20120629
  Transmission Date: 20120928
  Serious: No
  Sender: FDA-Public Use
  Company Number: US-B.I. PHARMACEUTICALS,INC./RIDGEFIELD-2012-BP-14803BP

PATIENT
  Sex: Female

DRUGS (4)
  1. ESTRAIDOL [Concomitant]
     Indication: HORMONE REPLACEMENT THERAPY
     Dates: start: 20110101
  2. TRADJENTA [Suspect]
     Indication: TYPE 2 DIABETES MELLITUS
     Dosage: 5 MG
     Route: 048
     Dates: start: 20120201
  3. LOSARTAN POTASSIUM [Concomitant]
     Indication: BLOOD PRESSURE
     Dosage: 50 MG
     Route: 048
  4. LEVOTHYROXINE SODIUM [Concomitant]
     Indication: THYROID DISORDER
     Route: 048
     Dates: start: 19900101

REACTIONS (3)
  - DIABETES MELLITUS INADEQUATE CONTROL [None]
  - ABDOMINAL PAIN UPPER [None]
  - WEIGHT INCREASED [None]
